FAERS Safety Report 18124693 (Version 6)
Quarter: 2022Q3

REPORT INFORMATION
  Report Type: Report from Study
  Country: JP (occurrence: JP)
  Receive Date: 20200807
  Receipt Date: 20220712
  Transmission Date: 20221027
  Serious: Yes (Hospitalization, Other)
  Sender: FDA-Public Use
  Company Number: JP-ALNYLAM PHARMACEUTICALS, INC.-ALN-2020-001073

PATIENT

DRUGS (19)
  1. ONPATTRO [Suspect]
     Active Substance: PATISIRAN SODIUM
     Indication: Hereditary neuropathic amyloidosis
     Dosage: 2 DOSAGE FORM
     Route: 041
     Dates: start: 20191125, end: 20191125
  2. ONPATTRO [Suspect]
     Active Substance: PATISIRAN SODIUM
     Dosage: 12.9 MILLIGRAM
     Route: 041
     Dates: start: 20191217, end: 20191217
  3. ONPATTRO [Suspect]
     Active Substance: PATISIRAN SODIUM
     Dosage: 11.7 MILLIGRAM
     Route: 041
     Dates: start: 20200107, end: 20200219
  4. ONPATTRO [Suspect]
     Active Substance: PATISIRAN SODIUM
     Dosage: 12 MILLIGRAM
     Route: 041
     Dates: start: 20200311, end: 20200311
  5. ONPATTRO [Suspect]
     Active Substance: PATISIRAN SODIUM
     Dosage: 11.7 MILLIGRAM
     Route: 041
     Dates: start: 20200401, end: 20200423
  6. ONPATTRO [Suspect]
     Active Substance: PATISIRAN SODIUM
     Dosage: 12.0 UNK
     Route: 041
     Dates: start: 20200513, end: 20200603
  7. ONPATTRO [Suspect]
     Active Substance: PATISIRAN SODIUM
     Dosage: 12.3 MILLIGRAM
     Route: 041
     Dates: start: 20200624, end: 20200624
  8. ONPATTRO [Suspect]
     Active Substance: PATISIRAN SODIUM
     Dosage: 12.0 MILLIGRAM
     Route: 041
     Dates: start: 20200715, end: 20200806
  9. DEXAMETHASONE SODIUM PHOSPHATE [Concomitant]
     Active Substance: DEXAMETHASONE SODIUM PHOSPHATE
     Indication: Prophylaxis
     Dosage: 9.9 MILLIGRAM, SINGLE
     Route: 041
     Dates: start: 20191217, end: 20200806
  10. POLARAMINE [Concomitant]
     Active Substance: DEXCHLORPHENIRAMINE MALEATE
     Indication: Prophylaxis
     Dosage: 5 MILLIGRAM, SINGLE
     Route: 041
     Dates: start: 20191217, end: 20200806
  11. GASTER [Concomitant]
     Active Substance: FAMOTIDINE
     Indication: Prophylaxis
     Dosage: 20 MILLIGRAM, SINGLE
     Route: 041
     Dates: start: 20191217, end: 20200806
  12. CALONAL [Concomitant]
     Active Substance: ACETAMINOPHEN
     Indication: Prophylaxis
     Dosage: 500 MILLIGRAM
     Route: 048
     Dates: start: 20200129, end: 20200311
  13. ACETAMINOPHEN [Concomitant]
     Active Substance: ACETAMINOPHEN
     Indication: Prophylaxis
     Dosage: 400 MILLIGRAM, SINGLE
     Route: 065
     Dates: start: 20191217, end: 20200806
  14. DEPAKENE [Concomitant]
     Active Substance: VALPROIC ACID
     Indication: Hereditary neuropathic amyloidosis
     Dosage: UNK
     Route: 048
  15. AMITRIPTYLINE [Concomitant]
     Active Substance: AMITRIPTYLINE
     Indication: Hereditary neuropathic amyloidosis
     Dosage: UNK
     Route: 048
  16. LYRICA [Concomitant]
     Active Substance: PREGABALIN
     Indication: Neuralgia
     Dosage: 75 MILLIGRAM, TWO TIMES
     Route: 048
     Dates: end: 20200823
  17. LYRICA [Concomitant]
     Active Substance: PREGABALIN
     Indication: Hereditary neuropathic amyloidosis
  18. VITAMINS [Concomitant]
     Active Substance: VITAMINS
     Indication: Vitamin supplementation
     Dosage: 1 GRAM, QD
     Route: 048
     Dates: start: 20191217, end: 20200806
  19. VITAMIN PREPARATIONS [Concomitant]
     Indication: Anaemia macrocytic
     Dosage: UNK
     Route: 065

REACTIONS (13)
  - Device related infection [Recovered/Resolved]
  - Creatinine renal clearance decreased [Unknown]
  - Pneumonia [Unknown]
  - Blood pressure decreased [Not Recovered/Not Resolved]
  - Urinary tract infection [Recovered/Resolved]
  - Blood albumin decreased [Unknown]
  - Diarrhoea [Not Recovered/Not Resolved]
  - Infusion related reaction [Recovered/Resolved]
  - Flushing [Recovered/Resolved]
  - Infusion related reaction [Recovered/Resolved]
  - Flushing [Recovered/Resolved]
  - Blood creatinine abnormal [Unknown]
  - Weight decreased [Recovering/Resolving]

NARRATIVE: CASE EVENT DATE: 20200130
